FAERS Safety Report 4912833-3 (Version None)
Quarter: 2006Q1

REPORT INFORMATION
  Report Type: 
  Country: None (occurrence: None)
  Receive Date: 20060210
  Receipt Date: 20060207
  Transmission Date: 20060701
  Serious: Yes (Hospitalization)
  Sender: FDA-Public Use
  Company Number: B0409254A

PATIENT
  Age: 10 Year
  Sex: Male
  Weight: 43.9082 kg

DRUGS (3)
  1. AMOXIL [Suspect]
     Indication: COUGH
     Dosage: ORAL
     Route: 048
     Dates: start: 20051122, end: 20051129
  2. BETAMETHASONE NA PO4 (BETAMETHASONE NA PO4) [Suspect]
     Indication: COUGH
     Dosage: ORAL
     Route: 048
     Dates: start: 20051122, end: 20051129
  3. DEXTROMETHORPHAN HBR SYRUP (DEXTROMETHORPHAN) [Suspect]
     Indication: COUGH
     Dosage: ORAL
     Route: 048
     Dates: end: 20051129

REACTIONS (1)
  - STEVENS-JOHNSON SYNDROME [None]
